FAERS Safety Report 4347352-9 (Version None)
Quarter: 2004Q1

REPORT INFORMATION
  Report Type: 
  Country: None (occurrence: None)
  Receive Date: 20040329
  Receipt Date: 20031230
  Transmission Date: 20041129
  Serious: No
  Sender: FDA-Public Use
  Company Number: USA031255571

PATIENT
  Age: 11 Year
  Sex: Male
  Weight: 45 kg

DRUGS (3)
  1. STRATTERA [Suspect]
     Indication: ATTENTION DEFICIT/HYPERACTIVITY DISORDER
     Dosage: 25 MG/2 DAY
     Dates: start: 20031220
  2. CLONIDINE HCL [Concomitant]
  3. RITALIN [Concomitant]

REACTIONS (7)
  - ABNORMAL BEHAVIOUR [None]
  - DYSPEPSIA [None]
  - MOOD SWINGS [None]
  - MYDRIASIS [None]
  - NAUSEA [None]
  - PSYCHOMOTOR HYPERACTIVITY [None]
  - TREMOR [None]
